FAERS Safety Report 8572012-8 (Version None)
Quarter: 2012Q3

REPORT INFORMATION
  Report Type: 
  Country: None (occurrence: None)
  Receive Date: 20120806
  Receipt Date: 20120726
  Transmission Date: 20120928
  Serious: Yes (Hospitalization, Disabling, Other)
  Sender: FDA-Public Use
  Company Number: US-009507513-1202USA04374

PATIENT

DRUGS (3)
  1. FOSAMAX [Suspect]
     Indication: OSTEOPENIA
     Dosage: 70 MG, QW
     Route: 048
     Dates: start: 20040101, end: 20060501
  2. FOSAMAX [Suspect]
     Dosage: 70 MG, QW
     Route: 048
  3. BONIVA [Suspect]
     Indication: OSTEOPENIA
     Dosage: 150 MG, QM
     Route: 048
     Dates: start: 20060501, end: 20080101

REACTIONS (42)
  - ARTHROPATHY [None]
  - PANCYTOPENIA [None]
  - LOW TURNOVER OSTEOPATHY [None]
  - PAIN [None]
  - THROMBOCYTOPENIA [None]
  - STEROID THERAPY [None]
  - OVERWEIGHT [None]
  - INSOMNIA [None]
  - INCREASED TENDENCY TO BRUISE [None]
  - ABDOMINAL PAIN [None]
  - APPENDIX DISORDER [None]
  - MYELODYSPLASTIC SYNDROME [None]
  - SPINAL OSTEOARTHRITIS [None]
  - BONE MARROW DISORDER [None]
  - BACK PAIN [None]
  - CHONDROMALACIA [None]
  - PAIN IN EXTREMITY [None]
  - CARTILAGE INJURY [None]
  - JOINT EFFUSION [None]
  - DIVERTICULUM [None]
  - FATIGUE [None]
  - LEUKOPENIA [None]
  - DRUG HYPERSENSITIVITY [None]
  - LOWER LIMB FRACTURE [None]
  - ASTHMA [None]
  - RHEUMATOID ARTHRITIS [None]
  - BONE MARROW OEDEMA [None]
  - MENISCUS LESION [None]
  - SPLENOMEGALY [None]
  - JOINT RANGE OF MOTION DECREASED [None]
  - LIVER DISORDER [None]
  - FEMUR FRACTURE [None]
  - ARTHRITIS [None]
  - INTERVERTEBRAL DISC PROTRUSION [None]
  - IMPAIRED HEALING [None]
  - OSTEOPOROSIS [None]
  - NERVOUSNESS [None]
  - ARTHRALGIA [None]
  - OOPHORECTOMY [None]
  - HEPATIC CIRRHOSIS [None]
  - ANAEMIA [None]
  - CONSTIPATION [None]
